FAERS Safety Report 12071336 (Version 1)
Quarter: 2016Q1

REPORT INFORMATION
  Report Type: Report from Study
  Country: US (occurrence: US)
  Receive Date: 20160211
  Receipt Date: 20160211
  Transmission Date: 20160526
  Serious: Yes (Hospitalization, Other)
  Sender: FDA-Public Use
  Company Number: US-GILEAD-2015-0184035

PATIENT
  Age: 50 Year
  Sex: Female

DRUGS (4)
  1. PROAIR HFA [Concomitant]
     Active Substance: ALBUTEROL SULFATE
  2. LEDIPASVIR/SOFOSBUVIR [Suspect]
     Active Substance: LEDIPASVIR\SOFOSBUVIR
     Indication: CHRONIC HEPATITIS C
     Dosage: 1 DF, QD
     Route: 048
     Dates: start: 20151014, end: 20160105
  3. QVAR [Concomitant]
     Active Substance: BECLOMETHASONE DIPROPIONATE
  4. DOXYCLINE /00055701/ [Suspect]
     Active Substance: DOXYCYCLINE
     Indication: BRONCHITIS
     Dosage: 100 MG, BID
     Route: 065
     Dates: start: 20151109, end: 20151117

REACTIONS (13)
  - Abdominal distension [Unknown]
  - Back pain [Unknown]
  - Colitis [Unknown]
  - Pancreatitis [Unknown]
  - Renal pain [Unknown]
  - Fatigue [Unknown]
  - Insomnia [Unknown]
  - Dyspepsia [Unknown]
  - Abdominal pain [Unknown]
  - Constipation [Unknown]
  - Abdominal discomfort [Unknown]
  - Bronchitis [Unknown]
  - Nausea [Unknown]

NARRATIVE: CASE EVENT DATE: 2015
